FAERS Safety Report 4436285-5 (Version None)
Quarter: 2004Q3

REPORT INFORMATION
  Report Type: 
  Country: None (occurrence: None)
  Receive Date: 20040830
  Receipt Date: 20040702
  Transmission Date: 20050211
  Serious: Yes (Other)
  Sender: FDA-Public Use
  Company Number: US-BRISTOL-MYERS SQUIBB COMPANY-12631602

PATIENT
  Age: 34 Year
  Sex: Male
  Weight: 116 kg

DRUGS (16)
  1. ERBITUX [Suspect]
     Indication: COLON CANCER METASTATIC
     Route: 042
     Dates: start: 20040702, end: 20040702
  2. BENADRYL [Concomitant]
     Indication: PREMEDICATION
     Route: 042
     Dates: start: 20040702, end: 20040702
  3. KYTRIL [Concomitant]
     Indication: PREMEDICATION
     Route: 042
     Dates: start: 20040702, end: 20040702
  4. DEXAMETHASONE [Concomitant]
     Indication: PREMEDICATION
     Route: 042
     Dates: start: 20040702, end: 20040702
  5. ALLOPURINOL [Concomitant]
     Route: 048
     Dates: start: 20040409
  6. CELEBREX [Concomitant]
     Route: 048
  7. PROZAC [Concomitant]
     Route: 048
     Dates: start: 20030613
  8. BUSPAR [Concomitant]
     Route: 048
     Dates: start: 20030613
  9. MULTI-VITAMIN [Concomitant]
     Dates: start: 20030926
  10. IRON [Concomitant]
     Route: 048
     Dates: start: 20030926
  11. VITAMIN D [Concomitant]
     Route: 048
     Dates: start: 20040206
  12. CALCIUM [Concomitant]
     Route: 047
     Dates: start: 20030926
  13. PRILOSEC [Concomitant]
     Route: 048
     Dates: start: 20031219
  14. VITAMIN B-12 [Concomitant]
     Dates: start: 20030926
  15. VICODIN [Concomitant]
     Route: 048
     Dates: start: 20040528
  16. LORAZEPAM [Concomitant]
     Dates: start: 20030902

REACTIONS (1)
  - DRUG HYPERSENSITIVITY [None]
